FAERS Safety Report 17795198 (Version 2)
Quarter: 2020Q2

REPORT INFORMATION
  Report Type: Report from Study
  Country: US (occurrence: US)
  Receive Date: 20200515
  Receipt Date: 20200626
  Transmission Date: 20200714
  Serious: Yes (Other)
  Sender: FDA-Public Use
  Company Number: US-EXELIXIS-XL18420029700

PATIENT
  Age: 71 Year
  Sex: Male
  Weight: 108.8 kg

DRUGS (22)
  1. EXCEDRIN [Concomitant]
     Active Substance: ACETAMINOPHEN\ASPIRIN\CAFFEINE
  2. LOSARTAN. [Concomitant]
     Active Substance: LOSARTAN
  3. DICLOFENAC [Concomitant]
     Active Substance: DICLOFENAC
  4. PERI-COLACE-T [Concomitant]
  5. XL184 [Suspect]
     Active Substance: CABOZANTINIB
     Dosage: 20 MG, QD
     Route: 048
     Dates: end: 20200506
  6. MAXZIDE [Concomitant]
     Active Substance: HYDROCHLOROTHIAZIDE\TRIAMTERENE
  7. TUMS [Concomitant]
     Active Substance: CALCIUM CARBONATE
  8. OXYCODONE [Concomitant]
     Active Substance: OXYCODONE
  9. ETODOLAC. [Concomitant]
     Active Substance: ETODOLAC
  10. ZANTAC [Concomitant]
     Active Substance: RANITIDINE HYDROCHLORIDE
  11. PROCHLORPERAZINE EDISYLATE. [Concomitant]
     Active Substance: PROCHLORPERAZINE EDISYLATE
  12. XL184 [Suspect]
     Active Substance: CABOZANTINIB
     Dosage: 20 MG, QD
     Route: 048
     Dates: start: 20200511
  13. AMLODIPINE [Concomitant]
     Active Substance: AMLODIPINE BESYLATE
  14. ROXICODONE [Concomitant]
     Active Substance: OXYCODONE HYDROCHLORIDE
  15. XL184 [Suspect]
     Active Substance: CABOZANTINIB
     Indication: HORMONE-REFRACTORY PROSTATE CANCER
     Dosage: 40 MG, QD
     Route: 048
     Dates: start: 20200326
  16. MIRALAX [Concomitant]
     Active Substance: POLYETHYLENE GLYCOL 3350
  17. FAMOTIDINE. [Concomitant]
     Active Substance: FAMOTIDINE
  18. ATEZOLIZUMAB. [Suspect]
     Active Substance: ATEZOLIZUMAB
     Indication: HORMONE-REFRACTORY PROSTATE CANCER
     Dosage: 1200 MG, Q3WEEKS
     Route: 042
     Dates: start: 20200326
  19. VITAMIN D3 [Concomitant]
     Active Substance: CHOLECALCIFEROL
  20. NALOXEGOL [Concomitant]
     Active Substance: NALOXEGOL
  21. LORAZEPAM. [Concomitant]
     Active Substance: LORAZEPAM
  22. CIMETIDINE [Concomitant]
     Active Substance: CIMETIDINE

REACTIONS (1)
  - Splenic infarction [Not Recovered/Not Resolved]

NARRATIVE: CASE EVENT DATE: 20200506
